FAERS Safety Report 10109657 (Version 2)
Quarter: 2014Q4

REPORT INFORMATION
  Report Type: Other
  Country: US (occurrence: US)
  Receive Date: 20140425
  Receipt Date: 20141211
  Transmission Date: 20150528
  Serious: Yes (Hospitalization, Other)
  Sender: FDA-Public Use
  Company Number: US-GSKPPD-2014GSK009708

PATIENT
  Age: 62 Year
  Sex: Male

DRUGS (5)
  1. LISINOPRIL. [Concomitant]
     Active Substance: LISINOPRIL
     Dosage: TREATMENT MEDICATION
     Route: 048
  2. COZAAR [Concomitant]
     Active Substance: LOSARTAN POTASSIUM
     Dosage: TREATMENT MEDICATION
     Route: 048
  3. ASPIRIN. [Concomitant]
     Active Substance: ASPIRIN
     Route: 048
     Dates: start: 200809
  4. COREG [Concomitant]
     Active Substance: CARVEDILOL
     Dosage: TREATMENT MEDICATION
     Route: 048
  5. AVANDIA [Suspect]
     Active Substance: ROSIGLITAZONE MALEATE
     Indication: DIABETES MELLITUS
     Dosage: AVANDIA WAS NOT LISTED AMONG THE PATIENT^S RECORDS REVIEWED.
     Route: 048

REACTIONS (1)
  - Cerebrovascular accident [Recovered/Resolved]

NARRATIVE: CASE EVENT DATE: 20080901
